FAERS Safety Report 5703863-2 (Version None)
Quarter: 2008Q2

REPORT INFORMATION
  Report Type: 
  Country: None (occurrence: None)
  Receive Date: 20080414
  Receipt Date: 20080408
  Transmission Date: 20081010
  Serious: Yes (Other)
  Sender: FDA-Public Use
  Company Number: FR-ELI_LILLY_AND_COMPANY-FR200804001874

PATIENT
  Sex: Female

DRUGS (8)
  1. ZYPREXA [Suspect]
     Indication: PSYCHOTIC DISORDER
     Dosage: 10 MG, DAILY (1/D)
     Route: 048
     Dates: end: 20080204
  2. LEXOMIL [Concomitant]
     Dosage: 1 D/F, DAILY (1/D)
     Dates: end: 20080204
  3. LARGACTIL [Concomitant]
     Indication: PSYCHOTIC DISORDER
     Dosage: UNK, 3/D 10 DROPS
     Route: 048
     Dates: end: 20080204
  4. LAMALINE [Concomitant]
     Dosage: 2 D/F, DAILY (1/D)
     Route: 048
     Dates: end: 20080204
  5. FORLAX [Concomitant]
     Dosage: 2 D/F, DAILY (1/D)
     Route: 048
  6. MEPROZINE [Concomitant]
     Dates: end: 20080204
  7. AMLOR [Concomitant]
     Dates: end: 20080201
  8. PROPRANOLOL [Concomitant]
     Dates: end: 20080201

REACTIONS (6)
  - DISORIENTATION [None]
  - DYSPNOEA [None]
  - EPISTAXIS [None]
  - FALL [None]
  - HEAD INJURY [None]
  - HYPOTENSION [None]
